FAERS Safety Report 5300009-X (Version None)
Quarter: 2007Q2

REPORT INFORMATION
  Report Type: 
  Country: None (occurrence: None)
  Receive Date: 20070417
  Receipt Date: 20070406
  Transmission Date: 20071010
  Serious: Yes (Other)
  Sender: FDA-Public Use
  Company Number: US-PFIZER INC-2007001432

PATIENT
  Age: 50 Year
  Sex: Male
  Weight: 88.9 kg

DRUGS (3)
  1. CHANTIX [Suspect]
     Indication: EX-SMOKER
     Dates: start: 20070101, end: 20070101
  2. MS CONTIN [Concomitant]
  3. VALIUM [Concomitant]

REACTIONS (3)
  - ABNORMAL DREAMS [None]
  - MENTAL IMPAIRMENT [None]
  - PAIN [None]
